FAERS Safety Report 5029442-0 (Version None)
Quarter: 2006Q2

REPORT INFORMATION
  Report Type: 
  Country: None (occurrence: None)
  Receive Date: 20060613
  Receipt Date: 20060530
  Transmission Date: 20061013
  Serious: Yes (Other)
  Sender: FDA-Public Use
  Company Number: 2006RR-02479

PATIENT
  Age: 73 Year
  Sex: Male

DRUGS (6)
  1. LISINOPRIL [Suspect]
     Dosage: 5 MG, QD
  2. SPIRONOLACTONE [Suspect]
     Dosage: 25 MG, QD
  3. DIGOXIN [Suspect]
     Dosage: 125 UG, QD, UNKNOWN
  4. FUROSEMIDE [Suspect]
     Dosage: 80 MG, QD
  5. SIMVASTATIN [Suspect]
     Dosage: 20 MG, QD
  6. WARFARIN(WARFARIN) [Suspect]

REACTIONS (1)
  - CARDIAC FAILURE [None]
